FAERS Safety Report 26041476 (Version 3)
Quarter: 2025Q4

REPORT INFORMATION
  Report Type: Spontaneous
  Country: GB (occurrence: GB)
  Receive Date: 20251113
  Receipt Date: 20251127
  Transmission Date: 20260118
  Serious: Yes (Hospitalization, Other)
  Sender: TEVA
  Company Number: UA-ASTRAZENECA-202510GLO031596UA

PATIENT
  Age: 72 Year
  Sex: Male

DRUGS (4)
  1. CISPLATIN [Suspect]
     Active Substance: CISPLATIN
     Indication: Product used for unknown indication
     Dosage: DAY 1 OF CYCLE
     Route: 042
     Dates: start: 20251023
  2. DURVALUMAB [Suspect]
     Active Substance: DURVALUMAB
     Indication: Product used for unknown indication
     Dosage: DAY 1 OF CYCLE
     Route: 042
     Dates: start: 20251023
  3. GEMCITABINE [Suspect]
     Active Substance: GEMCITABINE
     Indication: Product used for unknown indication
     Dosage: DAY 1 OF CYCLE
     Route: 042
     Dates: start: 20251023
  4. TREMELIMUMAB [Suspect]
     Active Substance: TREMELIMUMAB
     Indication: Product used for unknown indication
     Dosage: DAY 1 OF CYCLE
     Route: 042
     Dates: start: 20251023

REACTIONS (9)
  - Pyrexia [Not Recovered/Not Resolved]
  - Escherichia test positive [Unknown]
  - Fatigue [Unknown]
  - Urine odour abnormal [Unknown]
  - Streptococcus test positive [Unknown]
  - Oedema [Unknown]
  - Oedema peripheral [Unknown]
  - Streptococcal bacteraemia [Unknown]
  - Culture urine positive [Unknown]

NARRATIVE: CASE EVENT DATE: 20251027
